FAERS Safety Report 12107862 (Version 1)
Quarter: 2016Q1

REPORT INFORMATION
  Report Type: Spontaneous
  Country: US (occurrence: US)
  Receive Date: 20160224
  Receipt Date: 20160224
  Transmission Date: 20160526
  Serious: No
  Sender: FDA-Public Use
  Company Number: US-JNJFOC-20160215281

PATIENT
  Age: 69 Year
  Sex: Male
  Weight: 71.67 kg

DRUGS (5)
  1. SIMVASTATIN. [Concomitant]
     Active Substance: SIMVASTATIN
     Indication: BLOOD CHOLESTEROL ABNORMAL
     Route: 048
     Dates: start: 2011
  2. INVOKANA [Suspect]
     Active Substance: CANAGLIFLOZIN
     Indication: TYPE 2 DIABETES MELLITUS
     Route: 048
     Dates: start: 20160201, end: 20160216
  3. LISINOPRIL. [Concomitant]
     Active Substance: LISINOPRIL
     Indication: BLOOD PRESSURE ABNORMAL
     Route: 048
  4. METFORMIN [Concomitant]
     Active Substance: METFORMIN HYDROCHLORIDE
     Indication: DIABETES MELLITUS
     Route: 048
     Dates: start: 2014
  5. BABY ASPIRIN [Concomitant]
     Active Substance: ASPIRIN
     Route: 048

REACTIONS (4)
  - Off label use [Unknown]
  - Dizziness [Not Recovered/Not Resolved]
  - Lethargy [Not Recovered/Not Resolved]
  - Drug prescribing error [Unknown]

NARRATIVE: CASE EVENT DATE: 201602
